FAERS Safety Report 25840226 (Version 1)
Quarter: 2025Q3

REPORT INFORMATION
  Report Type: Spontaneous
  Country: US (occurrence: US)
  Receive Date: 20250924
  Receipt Date: 20250924
  Transmission Date: 20251021
  Serious: Yes (Hospitalization, Other)
  Sender: CHEPLAPHARM
  Company Number: US-CHEPLA-2025011106

PATIENT
  Age: 19 Year
  Sex: Male

DRUGS (8)
  1. OLANZAPINE [Suspect]
     Active Substance: OLANZAPINE
     Indication: Schizoaffective disorder
     Dosage: 2-WEEK SUPPLY OF ZYPREXA 10 MG PO Q HS?DAILY DOSE: 10 MILLIGRAM
     Route: 048
     Dates: start: 199901, end: 2003
  2. QUETIAPINE [Suspect]
     Active Substance: QUETIAPINE
     Indication: Schizoaffective disorder
     Dates: start: 2003
  3. METHAMPHETAMINE [Suspect]
     Active Substance: METHAMPHETAMINE
     Dates: start: 199809
  4. ATORVASTATIN [Suspect]
     Active Substance: ATORVASTATIN
  5. ATORVASTATIN [Suspect]
     Active Substance: ATORVASTATIN
  6. HALDOL [Suspect]
     Active Substance: HALOPERIDOL
     Indication: Schizoaffective disorder
     Dates: start: 1996
  7. GEODON [Suspect]
     Active Substance: ZIPRASIDONE HYDROCHLORIDE\ZIPRASIDONE MESYLATE
     Dates: start: 2013, end: 2014
  8. PLAVIX [Suspect]
     Active Substance: CLOPIDOGREL BISULFATE

REACTIONS (17)
  - Troponin increased [Unknown]
  - Brain injury [Unknown]
  - Cerebrovascular accident [Unknown]
  - Transient ischaemic attack [Unknown]
  - Seizure [Unknown]
  - Encephalomalacia [Unknown]
  - Metabolic disorder [Unknown]
  - Abnormal weight gain [Unknown]
  - Apathy [Unknown]
  - Fall [Unknown]
  - Stress [Unknown]
  - Impaired quality of life [Unknown]
  - Somnolence [Unknown]
  - Paraesthesia [Unknown]
  - Dizziness [Unknown]
  - Fear of death [Unknown]
  - Weight decreased [Unknown]

NARRATIVE: CASE EVENT DATE: 19990101
